FAERS Safety Report 8220909-0 (Version None)
Quarter: 2012Q1

REPORT INFORMATION
  Report Type: 
  Country: None (occurrence: None)
  Receive Date: 20120319
  Receipt Date: 20120309
  Transmission Date: 20120608
  Serious: No
  Sender: FDA-Public Use
  Company Number: US-BAYER-2012-024036

PATIENT
  Age: 64 Year
  Sex: Female
  Weight: 76 kg

DRUGS (2)
  1. ALEVE (CAPLET) [Suspect]
     Indication: ARTHRALGIA
     Dosage: 1 DF, PRN
     Route: 048
     Dates: start: 20120301, end: 20120308
  2. LIPITOR [Concomitant]

REACTIONS (6)
  - EYE SWELLING [None]
  - ORAL HERPES [None]
  - RASH [None]
  - ERYTHEMA [None]
  - SWELLING FACE [None]
  - CHEILITIS [None]
